FAERS Safety Report 8178339-6 (Version None)
Quarter: 2012Q1

REPORT INFORMATION
  Report Type: 
  Country: None (occurrence: None)
  Receive Date: 20120301
  Receipt Date: 20120229
  Transmission Date: 20120608
  Serious: Yes (Hospitalization, Other)
  Sender: FDA-Public Use
  Company Number: US-PFIZER INC-2012054477

PATIENT
  Sex: Female
  Weight: 77 kg

DRUGS (5)
  1. ROPINIROLE [Suspect]
     Indication: RESTLESS LEGS SYNDROME
     Dosage: 2 MG, 2X/DAY
  2. LEXAPRO [Concomitant]
     Indication: DEPRESSION
     Dosage: 10 MG, DAILY
  3. WELLBUTRIN [Concomitant]
     Indication: DEPRESSION
     Dosage: 300 MG, DAILY
  4. LIPITOR [Suspect]
     Indication: BLOOD CHOLESTEROL INCREASED
     Dosage: 20 MG, DAILY
  5. LORAZEPAM [Concomitant]
     Indication: ANXIETY
     Dosage: 0.5 MG, AS NEEDED (TWO TIMES A DAY)

REACTIONS (8)
  - DEPRESSION [None]
  - DRUG ADMINISTRATION ERROR [None]
  - MYALGIA [None]
  - SOMNOLENCE [None]
  - ANXIETY [None]
  - INSOMNIA [None]
  - DYSPEPSIA [None]
  - RESTLESS LEGS SYNDROME [None]
